FAERS Safety Report 21039400 (Version 1)
Quarter: 2022Q3

REPORT INFORMATION
  Report Type: Spontaneous
  Country: NL (occurrence: NL)
  Receive Date: 20220704
  Receipt Date: 20220704
  Transmission Date: 20221027
  Serious: Yes (Other)
  Sender: FDA-Public Use
  Company Number: NL-RK PHARMA, INC-20220600009

PATIENT

DRUGS (3)
  1. NICARDIPINE HYDROCHLORIDE [Suspect]
     Active Substance: NICARDIPINE HYDROCHLORIDE
     Indication: Gestational hypertension
     Dosage: 1, MG/H DOSAGE WAS INCREASED EVERY 15 MIN, BY 0.51 MG/H, TO A MAXIMUM OF 10 MG/H INFUSION, OR UNTIL
     Route: 042
  2. HETASTARCH [Suspect]
     Active Substance: HETASTARCH
     Dosage: 500 MILLILITER, (ONE HOUR BEFORE)
  3. MAGNESIUM SULFATE [Concomitant]
     Active Substance: MAGNESIUM SULFATE
     Indication: Gestational hypertension

REACTIONS (2)
  - Bradycardia [Recovered/Resolved]
  - Exposure during pregnancy [Recovered/Resolved]
